FAERS Safety Report 7577883-X (Version None)
Quarter: 2011Q2

REPORT INFORMATION
  Report Type: 
  Country: None (occurrence: None)
  Receive Date: 20110628
  Receipt Date: 20110622
  Transmission Date: 20111010
  Serious: Yes (Death)
  Sender: FDA-Public Use
  Company Number: SY-ELI_LILLY_AND_COMPANY-SY201106007282

PATIENT
  Age: 65 Year
  Sex: Male

DRUGS (1)
  1. HUMULIN 70/30 [Suspect]
     Indication: DIABETES MELLITUS
     Dosage: 16 U, UNK
     Route: 058
     Dates: start: 20110116, end: 20110515

REACTIONS (1)
  - MYOCARDIAL INFARCTION [None]
